FAERS Safety Report 25192370 (Version 1)
Quarter: 2025Q2

REPORT INFORMATION
  Report Type: Other
  Country: US (occurrence: US)
  Receive Date: 20250414
  Receipt Date: 20250414
  Transmission Date: 20250716
  Serious: Yes (Hospitalization, Other)
  Sender: LYNE LABORATORIES
  Company Number: US-Lyne Laboratories Inc.-2174815

PATIENT
  Age: 75 Year
  Sex: Male

DRUGS (1)
  1. DEXAMETHASONE [Suspect]
     Active Substance: DEXAMETHASONE
     Indication: Eye inflammation

REACTIONS (4)
  - Endocarditis histoplasma [Recovered/Resolved]
  - Necrotising retinitis [Recovering/Resolving]
  - Chorioretinitis [Recovering/Resolving]
  - Endophthalmitis [Recovering/Resolving]
